FAERS Safety Report 8586404-4 (Version None)
Quarter: 2012Q3

REPORT INFORMATION
  Report Type: 
  Country: None (occurrence: None)
  Receive Date: 20120810
  Receipt Date: 20120801
  Transmission Date: 20120928
  Serious: Yes (Other)
  Sender: FDA-Public Use
  Company Number: CN-ACTELION-A-CH2012-69769

PATIENT
  Age: 10 Year

DRUGS (3)
  1. SILDENAFIL [Concomitant]
     Dosage: 25 MG, TID
     Route: 048
  2. TRACLEER [Suspect]
     Indication: PULMONARY ARTERIAL HYPERTENSION
     Dosage: 62.5 MG, BID
     Route: 048
  3. TRACLEER [Suspect]
     Dosage: UNK
     Route: 048

REACTIONS (2)
  - COLITIS ULCERATIVE [None]
  - HAEMATOCHEZIA [None]
